FAERS Safety Report 10335139 (Version 1)
Quarter: 2014Q3

REPORT INFORMATION
  Report Type: Spontaneous
  Country: US (occurrence: None)
  Receive Date: 20140722
  Receipt Date: 20140722
  Transmission Date: 20150326
  Serious: No
  Sender: FDA-Public Use
  Company Number: None

PATIENT
  Age: 61 Year
  Sex: Female
  Weight: 68.04 kg

DRUGS (1)
  1. MOVIPREP [Suspect]
     Active Substance: ASCORBIC ACID\POLYETHYLENE GLYCOL 3350\POTASSIUM CHLORIDE\SODIUM ASCORBATE\SODIUM CHLORIDE\SODIUM SULFATE
     Indication: COLONOSCOPY
     Dosage: TAKE AS DIRECTED ON PACKAGE FOUR TIMES DAILY TAKEN BY MOUTH
     Route: 048
     Dates: start: 20140716, end: 20140716

REACTIONS (3)
  - Dyspnoea [None]
  - Nasal congestion [None]
  - Rhinorrhoea [None]

NARRATIVE: CASE EVENT DATE: 20140716
